FAERS Safety Report 9354084 (Version 2)
Quarter: 2013Q2

REPORT INFORMATION
  Report Type: Report from Study
  Country: CN (occurrence: CN)
  Receive Date: 20130618
  Receipt Date: 20130620
  Transmission Date: 20140414
  Serious: Yes (Death, Life-Threatening, Hospitalization)
  Sender: FDA-Public Use
  Company Number: CN-TEVA-410348USA

PATIENT
  Age: 66 Year
  Sex: Male
  Weight: 79 kg

DRUGS (2)
  1. TREANDA [Suspect]
     Indication: NON-HODGKIN^S LYMPHOMA
     Dosage: 1-3 CYCLE; 21 DAY CYCLE
     Route: 042
     Dates: start: 20121227, end: 20130430
  2. TREANDA [Suspect]
     Dosage: 4-5 CYCLE; 21 DAY CYCLE
     Dates: start: 20121227, end: 20130430

REACTIONS (3)
  - Gastrointestinal infection [Fatal]
  - Respiratory failure [Fatal]
  - Death [Fatal]
